FAERS Safety Report 8082282-0 (Version None)
Quarter: 2012Q1

REPORT INFORMATION
  Report Type: 
  Country: None (occurrence: None)
  Receive Date: 20120127
  Receipt Date: 20110215
  Transmission Date: 20120608
  Serious: No
  Sender: FDA-Public Use
  Company Number: US-ABBOTT-11P-163-0705598-00

PATIENT
  Sex: Female

DRUGS (8)
  1. VITAMIN B-12 [Concomitant]
     Indication: MALABSORPTION
  2. HUMIRA [Suspect]
     Indication: CROHN'S DISEASE
     Dosage: DAY ONE
     Route: 058
     Dates: start: 20110210
  3. PREVACID [Concomitant]
     Indication: ABDOMINAL DISCOMFORT
  4. ALLERGY SHOTS [Concomitant]
     Indication: SEASONAL ALLERGY
  5. PENTACORT [Concomitant]
     Indication: GASTROINTESTINAL INFLAMMATION
  6. ADDERALL XR 10 [Concomitant]
     Indication: PRODUCT USED FOR UNKNOWN INDICATION
  7. METHOTREXATE [Concomitant]
     Indication: GASTROINTESTINAL INFLAMMATION
     Dosage: 4 TABS WEEKLY
  8. FOLIC ACID [Concomitant]
     Indication: VITAMIN SUPPLEMENTATION

REACTIONS (1)
  - INJECTION SITE PAIN [None]
